FAERS Safety Report 14684663 (Version 5)
Quarter: 2018Q3

REPORT INFORMATION
  Report Type: Report from Study
  Country: US (occurrence: US)
  Receive Date: 20180327
  Receipt Date: 20180802
  Transmission Date: 20181010
  Serious: Yes (Hospitalization, Disabling)
  Sender: FDA-Public Use
  Company Number: US-JNJFOC-20180115763

PATIENT
  Sex: Female

DRUGS (35)
  1. IMBRUVICA [Suspect]
     Active Substance: IBRUTINIB
     Indication: CHRONIC LYMPHOCYTIC LEUKAEMIA
     Route: 048
     Dates: start: 20170530
  2. CYCLOPENTOLATE. [Concomitant]
     Active Substance: CYCLOPENTOLATE
  3. FLUTICASONE. [Concomitant]
     Active Substance: FLUTICASONE
  4. METOPROLOL TARTRATE. [Concomitant]
     Active Substance: METOPROLOL TARTRATE
  5. NITROSTAT [Concomitant]
     Active Substance: NITROGLYCERIN
  6. MILK OF MAGNESIA [Concomitant]
     Active Substance: MAGNESIUM HYDROXIDE
  7. MONTELUKAST [Concomitant]
     Active Substance: MONTELUKAST SODIUM
  8. ZOLPIDEM [Concomitant]
     Active Substance: ZOLPIDEM\ZOLPIDEM TARTRATE
  9. IMBRUVICA [Suspect]
     Active Substance: IBRUTINIB
     Indication: LYMPHOCYTIC LEUKAEMIA
     Route: 048
     Dates: start: 20160602
  10. IMBRUVICA [Suspect]
     Active Substance: IBRUTINIB
     Indication: LYMPHOCYTIC LEUKAEMIA
     Route: 048
     Dates: start: 20170530
  11. MAGNESIUM OXIDE. [Concomitant]
     Active Substance: MAGNESIUM OXIDE
  12. IMBRUVICA [Suspect]
     Active Substance: IBRUTINIB
     Indication: CHRONIC LYMPHOCYTIC LEUKAEMIA
     Route: 048
     Dates: start: 20160602
  13. IMBRUVICA [Suspect]
     Active Substance: IBRUTINIB
     Indication: LYMPHOCYTIC LEUKAEMIA
     Route: 048
     Dates: start: 20170607
  14. LEVOTHYROXINE. [Concomitant]
     Active Substance: LEVOTHYROXINE
  15. SIMBRINZA [Concomitant]
     Active Substance: BRIMONIDINE TARTRATE\BRINZOLAMIDE
  16. SPIRONOLACTONE. [Concomitant]
     Active Substance: SPIRONOLACTONE
  17. CALCIUM [Concomitant]
     Active Substance: CALCIUM
  18. CICLOPIROX. [Concomitant]
     Active Substance: CICLOPIROX
  19. PREDNISOLONE. [Concomitant]
     Active Substance: PREDNISOLONE
  20. ALLOPURINOL. [Concomitant]
     Active Substance: ALLOPURINOL
  21. LATANOPROST. [Concomitant]
     Active Substance: LATANOPROST
  22. MUPIROCIN. [Concomitant]
     Active Substance: MUPIROCIN
  23. SALBUTAMOL SULFATE [Concomitant]
     Active Substance: ALBUTEROL SULFATE
  24. ATORVASTATIN [Concomitant]
     Active Substance: ATORVASTATIN
  25. FISH OIL [Concomitant]
     Active Substance: FISH OIL
  26. PREDNISONE. [Concomitant]
     Active Substance: PREDNISONE
  27. RESTASIS [Concomitant]
     Active Substance: CYCLOSPORINE
  28. TRAVATAN [Concomitant]
     Active Substance: TRAVOPROST
  29. IMBRUVICA [Suspect]
     Active Substance: IBRUTINIB
     Indication: CHRONIC LYMPHOCYTIC LEUKAEMIA
     Route: 048
     Dates: start: 20170607
  30. BREO ELLIPTA [Concomitant]
     Active Substance: FLUTICASONE FUROATE\VILANTEROL TRIFENATATE
  31. KETOROLAC [Concomitant]
     Active Substance: KETOROLAC\KETOROLAC TROMETHAMINE
  32. OMEPRAZOLE. [Concomitant]
     Active Substance: OMEPRAZOLE
  33. ROZEREM [Concomitant]
     Active Substance: RAMELTEON
  34. SIMVASTATIN. [Concomitant]
     Active Substance: SIMVASTATIN
  35. TRIAMCINOLONE [Concomitant]
     Active Substance: TRIAMCINOLONE

REACTIONS (7)
  - Deafness [Unknown]
  - Feeling abnormal [Unknown]
  - Hospitalisation [Unknown]
  - Malaise [Unknown]
  - Sleep disorder [Unknown]
  - Blindness [Unknown]
  - Head discomfort [Unknown]

NARRATIVE: CASE EVENT DATE: 2017
